FAERS Safety Report 6188197-7 (Version None)
Quarter: 2009Q2

REPORT INFORMATION
  Report Type: 
  Country: None (occurrence: None)
  Receive Date: 20090513
  Receipt Date: 20090511
  Transmission Date: 20091009
  Serious: Yes (Other)
  Sender: FDA-Public Use
  Company Number: DE-PFIZER INC-2009173865

PATIENT
  Age: 49 Year

DRUGS (2)
  1. TOVIAZ [Suspect]
     Indication: HYPERTONIC BLADDER
     Dosage: UNK
     Route: 048
     Dates: start: 20090223, end: 20090223
  2. LEVOTHYROXINE SODIUM [Concomitant]
     Dosage: UNK

REACTIONS (5)
  - CLUMSINESS [None]
  - DIARRHOEA [None]
  - LOGORRHOEA [None]
  - RESTLESSNESS [None]
  - VOMITING [None]
